FAERS Safety Report 7207676-4 (Version None)
Quarter: 2011Q1

REPORT INFORMATION
  Report Type: 
  Country: None (occurrence: None)
  Receive Date: 20110103
  Receipt Date: 20101223
  Transmission Date: 20110831
  Serious: Yes (Hospitalization)
  Sender: FDA-Public Use
  Company Number: CO-GENENTECH-311679

PATIENT
  Sex: Male

DRUGS (2)
  1. MABTHERA [Suspect]
     Indication: ANTIPHOSPHOLIPID SYNDROME
     Dosage: 1000 MG, UNK
     Route: 042
     Dates: start: 20080708, end: 20080722
  2. CELLCEPT [Suspect]
     Indication: ANTIPHOSPHOLIPID SYNDROME
     Dosage: UNK
     Route: 048
     Dates: start: 20090514

REACTIONS (2)
  - OEDEMA [None]
  - HYPOKALAEMIA [None]
